FAERS Safety Report 7477659-8 (Version None)
Quarter: 2011Q2

REPORT INFORMATION
  Report Type: 
  Country: None (occurrence: None)
  Receive Date: 20110513
  Receipt Date: 20110405
  Transmission Date: 20111010
  Serious: Yes (Hospitalization, Other)
  Sender: FDA-Public Use
  Company Number: US-BAYER-201034641NA

PATIENT
  Age: 25 Year
  Sex: Female
  Weight: 61.224 kg

DRUGS (3)
  1. YAZ [Suspect]
     Indication: PRODUCT USED FOR UNKNOWN INDICATION
     Dosage: UNK
     Route: 048
     Dates: start: 20050101, end: 20080101
  2. YASMIN [Suspect]
     Indication: PRODUCT USED FOR UNKNOWN INDICATION
     Dosage: UNK
     Route: 048
     Dates: start: 20050101, end: 20080101
  3. MARIJUANA [Concomitant]

REACTIONS (6)
  - GALLBLADDER NON-FUNCTIONING [None]
  - ANXIETY [None]
  - CHOLECYSTITIS CHRONIC [None]
  - HEPATIC NEOPLASM [None]
  - DYSPNOEA [None]
  - FOCAL NODULAR HYPERPLASIA [None]
